FAERS Safety Report 4527273-9 (Version None)
Quarter: 2004Q4

REPORT INFORMATION
  Report Type: 
  Country: None (occurrence: None)
  Receive Date: 20041130
  Receipt Date: 20040902
  Transmission Date: 20050328
  Serious: No
  Sender: FDA-Public Use
  Company Number: FABR-10762

PATIENT
  Age: 33 Year
  Sex: Male
  Weight: 68.4932 kg

DRUGS (3)
  1. FABRAZYME [Suspect]
     Indication: FABRY'S DISEASE
     Dosage: 70 MG Q2WKS IV
     Route: 042
     Dates: start: 20040409
  2. ZITHROMAX [Concomitant]
  3. PERCOCET [Concomitant]

REACTIONS (4)
  - ARTHRALGIA [None]
  - ARTHROPOD BITE [None]
  - INFLUENZA LIKE ILLNESS [None]
  - PYREXIA [None]
